FAERS Safety Report 6294863-5 (Version None)
Quarter: 2009Q3

REPORT INFORMATION
  Report Type: 
  Country: None (occurrence: None)
  Receive Date: 20090731
  Receipt Date: 20090731
  Transmission Date: 20100115
  Serious: Yes (Hospitalization)
  Sender: FDA-Public Use
  Company Number: None

PATIENT
  Sex: Female
  Weight: 68 kg

DRUGS (10)
  1. LENALIDOMIDE, 25 MG, PO, QD 1-14 [Suspect]
     Indication: MULTIPLE MYELOMA
     Dosage: 25 MG, PO, QD 1-14
     Route: 048
     Dates: start: 20090601, end: 20090611
  2. METOPROLOL SUCCINATE [Concomitant]
  3. AMIODARONE HCL [Concomitant]
  4. PROCAINAMIDE HCL [Concomitant]
  5. FAMOTIDINE [Concomitant]
  6. ASPIRIN [Concomitant]
  7. LORAZEPAM [Concomitant]
  8. CHOLECALCIFEROL [Concomitant]
  9. FISH OIL [Concomitant]
  10. VITAMIN K [Concomitant]

REACTIONS (5)
  - CARDIOMYOPATHY [None]
  - MYOCARDIAL FIBROSIS [None]
  - VENTRICULAR EXTRASYSTOLES [None]
  - VENTRICULAR HYPOKINESIA [None]
  - VENTRICULAR TACHYCARDIA [None]
